FAERS Safety Report 17855749 (Version 1)
Quarter: 2020Q2

REPORT INFORMATION
  Report Type: Spontaneous
  Country: US (occurrence: US)
  Receive Date: 20200603
  Receipt Date: 20200603
  Transmission Date: 20200714
  Serious: No
  Sender: FDA-Public Use
  Company Number: US-AVEDRO-AVE-2019-0457-AE

PATIENT
  Age: 32 Year
  Sex: Male

DRUGS (3)
  1. AVEDRO CROSS-LINKING PRODUCT(S), UNSPECIFIED [Suspect]
     Active Substance: RIBOFLAVIN 5^-PHOSPHATE SODIUM
     Indication: KERATOCONUS
     Route: 047
     Dates: start: 20191024, end: 20191024
  2. ATIVAN [Concomitant]
     Active Substance: LORAZEPAM
     Indication: FEELING OF RELAXATION
     Dates: start: 20191024, end: 20191024
  3. [BANDAGE] CONTACT LENS [Suspect]
     Active Substance: DEVICE
     Indication: KERATOCONUS
     Route: 047
     Dates: start: 20191024

REACTIONS (5)
  - Eye pain [Recovered/Resolved]
  - Night blindness [Unknown]
  - Dry eye [Unknown]
  - Eye complication associated with device [Unknown]
  - Photophobia [Unknown]

NARRATIVE: CASE EVENT DATE: 201910
